FAERS Safety Report 25315324 (Version 1)
Quarter: 2025Q2

REPORT INFORMATION
  Report Type: Report from Study
  Country: US (occurrence: US)
  Receive Date: 20250514
  Receipt Date: 20250514
  Transmission Date: 20250717
  Serious: Yes (Other)
  Sender: MALLINCKRODT
  Company Number: US-MALLINCKRODT-MNK202500520

PATIENT
  Age: 78 Year
  Sex: Female
  Weight: 108 kg

DRUGS (5)
  1. CORTICOTROPIN [Suspect]
     Active Substance: CORTICOTROPIN
     Indication: Rheumatoid arthritis
     Route: 058
     Dates: start: 20250121
  2. MEDROL [Suspect]
     Active Substance: METHYLPREDNISOLONE
     Indication: Product used for unknown indication
  3. PREDNISONE [Suspect]
     Active Substance: PREDNISONE
     Indication: Product used for unknown indication
  4. METHOTREXATE [Suspect]
     Active Substance: METHOTREXATE
     Indication: Product used for unknown indication
  5. REMICADE [Concomitant]
     Active Substance: INFLIXIMAB
     Dates: start: 20250127

REACTIONS (12)
  - Shoulder arthroplasty [Unknown]
  - Arthralgia [Not Recovered/Not Resolved]
  - Feeling jittery [Unknown]
  - Restlessness [Not Recovered/Not Resolved]
  - Pain [Recovered/Resolved]
  - Flushing [Unknown]
  - Sunburn [Unknown]
  - Middle insomnia [Not Recovered/Not Resolved]
  - Injection site bruising [Unknown]
  - Peripheral swelling [Recovered/Resolved]
  - Therapeutic response shortened [Unknown]
  - Contraindicated product administered [Unknown]

NARRATIVE: CASE EVENT DATE: 20250101
